FAERS Safety Report 8845237 (Version 1)
Quarter: 2012Q4

REPORT INFORMATION
  Report Type: Spontaneous
  Country: US (occurrence: None)
  Receive Date: 20121009
  Receipt Date: 20121009
  Transmission Date: 20130627
  Serious: Yes (Other)
  Sender: FDA-Public Use
  Company Number: 2012PROUSA02058

PATIENT
  Age: 80 Year
  Sex: Male
  Weight: 173 kg

DRUGS (8)
  1. PROVENGE [Suspect]
     Indication: PROSTATE CANCER METASTATIC
     Dosage: 250 ml, single, Intravenous
     Route: 042
     Dates: start: 20120618, end: 20120618
  2. PROVENGE [Suspect]
     Indication: PROSTATE CANCER METASTATIC
     Route: 042
     Dates: start: 20120726, end: 20120726
  3. PROVENGE [Suspect]
     Indication: PROSTATE CANCER METASTATIC
     Route: 042
     Dates: start: 20120809, end: 20120809
  4. ACTONEL [RISEDRONATE SODIUM] [Concomitant]
  5. AMLODIPINE (AMLODIPINE) [Concomitant]
  6. ASPIRIN (ACETYLSALICYLIC ACID) [Concomitant]
  7. LIPITOR (ATORVASTATIN CALCIUM) [Concomitant]
  8. QUINAPRIL (QUINAPRIL HYDROCHLORIDE) [Concomitant]

REACTIONS (20)
  - Deep vein thrombosis [None]
  - Dysphagia [None]
  - Local swelling [None]
  - Night sweats [None]
  - Malaise [None]
  - Chest pain [None]
  - Libido decreased [None]
  - Urinary hesitation [None]
  - Erectile dysfunction [None]
  - Pollakiuria [None]
  - Nocturia [None]
  - Urine flow decreased [None]
  - Nausea [None]
  - Vomiting [None]
  - Weight decreased [None]
  - Headache [None]
  - Asthenia [None]
  - Tremor [None]
  - Metastasis [None]
  - Prostate cancer [None]
